FAERS Safety Report 25999290 (Version 1)
Quarter: 2025Q4

REPORT INFORMATION
  Report Type: Spontaneous
  Country: EU (occurrence: EU)
  Receive Date: 20251105
  Receipt Date: 20251105
  Transmission Date: 20260117
  Serious: Yes (Other)
  Sender: ROCHE
  Company Number: EU-ROCHE-10000423241

PATIENT
  Sex: Male

DRUGS (1)
  1. HEMLIBRA [Suspect]
     Active Substance: EMICIZUMAB-KXWH
     Indication: Factor VIII deficiency
     Route: 058

REACTIONS (6)
  - Lip injury [Unknown]
  - Lip haemorrhage [Unknown]
  - Wound [Unknown]
  - Haemorrhage [Unknown]
  - Head injury [Unknown]
  - Fall [Unknown]
